FAERS Safety Report 4597425-0 (Version None)
Quarter: 2005Q1

REPORT INFORMATION
  Report Type: 
  Country: None (occurrence: None)
  Receive Date: 20050303
  Receipt Date: 20050113
  Transmission Date: 20050727
  Serious: Yes (Other)
  Sender: FDA-Public Use
  Company Number: PHEH2005US00965

PATIENT
  Age: 27 Year
  Sex: Female
  Weight: 98 kg

DRUGS (6)
  1. TRILEPTAL [Suspect]
     Indication: DISSOCIATIVE IDENTITY DISORDER
     Dosage: 450 MG, QD
     Route: 048
     Dates: start: 20040818, end: 20050101
  2. PROZAC [Suspect]
     Dosage: 20 MG, QD
     Route: 048
     Dates: start: 20040601
  3. PROZAC [Suspect]
     Dosage: 40 MG, QD
     Route: 048
  4. PROZAC [Suspect]
     Dosage: 60 MG, QD
     Route: 048
  5. PROZAC [Suspect]
     Dosage: 35 MG, QD
     Route: 048
  6. AMBIEN [Suspect]
     Dates: start: 20040801

REACTIONS (3)
  - BLOOD PROLACTIN INCREASED [None]
  - CONDITION AGGRAVATED [None]
  - DRUG EXPOSURE DURING PREGNANCY [None]
